FAERS Safety Report 17913989 (Version 1)
Quarter: 2020Q2

REPORT INFORMATION
  Report Type: Spontaneous
  Country: US (occurrence: US)
  Receive Date: 20200618
  Receipt Date: 20200618
  Transmission Date: 20200714
  Serious: No
  Sender: FDA-Public Use
  Company Number: US-TEVA-2020-US-1788407

PATIENT
  Age: 71 Year
  Sex: Female

DRUGS (1)
  1. DIAZEPAM IVAX [Suspect]
     Active Substance: DIAZEPAM
     Route: 065

REACTIONS (2)
  - Pruritus [Unknown]
  - Allergic reaction to excipient [Unknown]
